FAERS Safety Report 17711094 (Version 1)
Quarter: 2020Q2

REPORT INFORMATION
  Report Type: Spontaneous
  Country: JO (occurrence: JO)
  Receive Date: 20200427
  Receipt Date: 20200427
  Transmission Date: 20200714
  Serious: Yes (Death, Other)
  Sender: FDA-Public Use
  Company Number: JO-ALVOGEN-2020-ALVOGEN-108190

PATIENT
  Age: 23 Year
  Sex: Female

DRUGS (3)
  1. DOXORUBICIN [Suspect]
     Active Substance: DOXORUBICIN
     Indication: DESMOPLASTIC SMALL ROUND CELL TUMOUR
     Dosage: P6 PROTOCOL, CYCLICAL
  2. CYCLOPHOSPHAMIDE. [Suspect]
     Active Substance: CYCLOPHOSPHAMIDE
     Indication: DESMOPLASTIC SMALL ROUND CELL TUMOUR
     Dosage: P6 PROTOCOL, CYCLICAL
  3. VINCRISTINE SULFATE. [Suspect]
     Active Substance: VINCRISTINE SULFATE
     Indication: DESMOPLASTIC SMALL ROUND CELL TUMOUR
     Dosage: P6 PROTOCOL, CYCLICAL

REACTIONS (5)
  - Febrile neutropenia [Unknown]
  - Staphylococcal sepsis [Fatal]
  - Septic shock [Fatal]
  - Disease progression [Unknown]
  - Multiple organ dysfunction syndrome [Fatal]
